FAERS Safety Report 19824919 (Version 3)
Quarter: 2022Q1

REPORT INFORMATION
  Report Type: Spontaneous
  Country: GB (occurrence: GB)
  Receive Date: 20210914
  Receipt Date: 20220201
  Transmission Date: 20220423
  Serious: Yes (Hospitalization)
  Sender: FDA-Public Use
  Company Number: GB-PFIZER INC-202101165259

PATIENT
  Age: 66 Year
  Sex: Female
  Weight: 75.29 kg

DRUGS (13)
  1. ENBREL [Suspect]
     Active Substance: ETANERCEPT
     Indication: Rheumatoid arthritis
     Dosage: 50 MILLIGRAM, QWK
     Route: 065
     Dates: start: 2011
  2. METHOTREXATE [Concomitant]
     Active Substance: METHOTREXATE
     Dosage: 5 MILLIGRAM, QWK
  3. ACETAMINOPHEN [Concomitant]
     Active Substance: ACETAMINOPHEN
     Dosage: 2 QDS PRN
  4. PREDNISOLONE [Concomitant]
     Active Substance: PREDNISOLONE
     Dosage: AS DIRECTED 2 AT MORNING
  5. ALENDRONIC ACID [Concomitant]
     Active Substance: ALENDRONIC ACID
     Dosage: 1 WEEKLY ON FRIDAYS
  6. AMITRIPTYLINE [Concomitant]
     Active Substance: AMITRIPTYLINE
     Dosage: 1-2 AT NIGHT
  7. ATENOLOL [Concomitant]
     Active Substance: ATENOLOL
     Dosage: TAKE ONE DAILY
  8. CALCEOS [Concomitant]
     Active Substance: CALCIUM CARBONATE\CHOLECALCIFEROL
     Dosage: ONE TO BE TAKEN TWICE A DAY
  9. DIHYDROCODEINE [Concomitant]
     Active Substance: DIHYDROCODEINE
     Dosage: ONE TO BE TAKEN THREE TIMES A DAY
  10. ESOMEPRAZOLE [Concomitant]
     Active Substance: ESOMEPRAZOLE
     Dosage: ONE TO BE TAKEN TWICE A DAY
  11. ETODOLAC [Concomitant]
     Active Substance: ETODOLAC
     Dosage: ONE TO BE TAKEN DAILY
  12. FERROUS FUMARATE [Concomitant]
     Active Substance: FERROUS FUMARATE
     Dosage: ONE TO BE TAKEN EACH DAY
  13. FOLIC ACID [Concomitant]
     Active Substance: FOLIC ACID
     Dosage: ONCE WEEKLY ON FRIDAYS

REACTIONS (2)
  - Joint dislocation [Recovered/Resolved]
  - Blood test abnormal [Recovered/Resolved]

NARRATIVE: CASE EVENT DATE: 20210701
